FAERS Safety Report 5669173-7 (Version None)
Quarter: 2008Q1

REPORT INFORMATION
  Report Type: 
  Country: None (occurrence: None)
  Receive Date: 20080317
  Receipt Date: 20080317
  Transmission Date: 20080703
  Serious: Yes (Hospitalization)
  Sender: FDA-Public Use
  Company Number: None

PATIENT
  Sex: Male
  Weight: 84.9 kg

DRUGS (12)
  1. HEPARIN [Suspect]
     Indication: CENTRAL VENOUS CATHETERISATION
     Dosage: ARTERIAL LINE INFUSION; INTRA-ARTERIAL
     Route: 013
     Dates: start: 20080102, end: 20080102
  2. REGULAR INSULIN [Concomitant]
  3. PANTOPRAZOLE SODIUM [Concomitant]
  4. BICALUTAMIDE [Concomitant]
  5. METHYLPREDNISOLONE [Concomitant]
  6. AMIODARONE HCL [Concomitant]
  7. DILTIAZEM [Concomitant]
  8. AMLODIPINE [Concomitant]
  9. VANCOMYCIN [Concomitant]
  10. CIPROFLOXACIN [Concomitant]
  11. INSULIN GLARGINE [Concomitant]
  12. HEPARIN LOCK-FLUSH [Concomitant]

REACTIONS (3)
  - INJECTION SITE ULCER [None]
  - INJECTION SITE VESICLES [None]
  - PALLOR [None]
